FAERS Safety Report 12358570 (Version 2)
Quarter: 2016Q2

REPORT INFORMATION
  Report Type: Spontaneous
  Country: NO (occurrence: NO)
  Receive Date: 20160512
  Receipt Date: 20160531
  Transmission Date: 20160815
  Serious: Yes (Hospitalization)
  Sender: FDA-Public Use
  Company Number: NO-GUERBET LLC-1051996

PATIENT
  Age: 41 Year
  Sex: Male

DRUGS (1)
  1. DOTAREM [Suspect]
     Active Substance: GADOTERATE MEGLUMINE
     Indication: NUCLEAR MAGNETIC RESONANCE IMAGING HEART
     Route: 040
     Dates: start: 20160503, end: 20160503

REACTIONS (9)
  - Malaise [Unknown]
  - Photophobia [Unknown]
  - Swelling [Unknown]
  - Dizziness [Unknown]
  - Off label use [Unknown]
  - Dysgeusia [Unknown]
  - Rash pruritic [Unknown]
  - Blister [Unknown]
  - Parosmia [Unknown]

NARRATIVE: CASE EVENT DATE: 20160503
